FAERS Safety Report 7497172-1 (Version None)
Quarter: 2011Q2

REPORT INFORMATION
  Report Type: 
  Country: None (occurrence: None)
  Receive Date: 20110523
  Receipt Date: 20110519
  Transmission Date: 20111010
  Serious: Yes (Life-Threatening, Hospitalization)
  Sender: FDA-Public Use
  Company Number: DE-ASTRAZENECA-2011SE28013

PATIENT
  Age: 38 Year
  Sex: Male

DRUGS (4)
  1. SEROQUEL XR [Suspect]
     Route: 048
  2. SEROQUEL XR [Suspect]
     Indication: DEPRESSION
     Route: 048
  3. SEROQUEL XR [Suspect]
     Indication: DELUSION
     Route: 048
  4. SEROQUEL XR [Suspect]
     Route: 048

REACTIONS (2)
  - PELVIC VENOUS THROMBOSIS [None]
  - PULMONARY EMBOLISM [None]
